FAERS Safety Report 5207781-8 (Version None)
Quarter: 2006Q4

REPORT INFORMATION
  Report Type: 
  Country: None (occurrence: None)
  Receive Date: 20061030
  Receipt Date: 20060731
  Transmission Date: 20070319
  Serious: No
  Sender: FDA-Public Use
  Company Number: 256000

PATIENT
  Age: 58 Year
  Sex: Female

DRUGS (4)
  1. LEVEMIR [Suspect]
     Indication: INSULIN-REQUIRING TYPE II DIABETES MELLITUS
     Dosage: 10 IU, QD, SUBCUTANEOUS
     Route: 058
     Dates: start: 20060603
  2. GLYBURIDE [Concomitant]
  3. METFORMIN HCL [Concomitant]
  4. BAYER'S CHILDREN'S ASPIRIN (ACETYLSALICYLIC ACID) [Concomitant]

REACTIONS (1)
  - INJECTION SITE BRUISING [None]
